FAERS Safety Report 12332637 (Version 4)
Quarter: 2016Q3

REPORT INFORMATION
  Report Type: Spontaneous
  Country: US (occurrence: US)
  Receive Date: 20160504
  Receipt Date: 20160805
  Transmission Date: 20161109
  Serious: Yes (Hospitalization)
  Sender: FDA-Public Use
  Company Number: US-PFIZER INC-2015261862

PATIENT
  Age: 53 Year
  Sex: Female

DRUGS (6)
  1. LYRICA [Suspect]
     Active Substance: PREGABALIN
     Indication: FATIGUE
  2. PROGESTERONE. [Concomitant]
     Active Substance: PROGESTERONE
     Dosage: UNK
     Dates: start: 201103
  3. LYRICA [Suspect]
     Active Substance: PREGABALIN
     Indication: FIBROMYALGIA
     Dosage: 50 MG, 3X/DAY
     Route: 048
     Dates: start: 2009
  4. HYDROCODONE [Suspect]
     Active Substance: HYDROCODONE
     Dosage: 10-325
     Dates: start: 200812
  5. LYRICA [Suspect]
     Active Substance: PREGABALIN
     Indication: FATIGUE
     Dosage: 150 MG, DAILY (100MG-AM; 50MG-PM)
     Dates: start: 200906
  6. ESTROGEN [Concomitant]
     Active Substance: ESTRONE\SUS SCROFA OVARY
     Dosage: UNK
     Dates: start: 201103

REACTIONS (1)
  - Stress cardiomyopathy [Recovered/Resolved]

NARRATIVE: CASE EVENT DATE: 201109
